FAERS Safety Report 20835816 (Version 1)
Quarter: 2022Q2

REPORT INFORMATION
  Report Type: 
  Country: None (occurrence: None)
  Receive Date: 20220516
  Receipt Date: 20220516
  Transmission Date: 20220721
  Serious: No
  Sender: FDA-Public Use
  Company Number: CA-ROCHE-1932401

PATIENT
  Age: 50 Year

DRUGS (23)
  1. RITUXAN [Suspect]
     Active Substance: RITUXIMAB
     Dosage: LAST DOSE OF RITUXIMAB WAS ON 22/NOV/2016, PATIENT WAS INFUSED WITH JEWISH HOSPITAL
     Dates: start: 20150608
  2. RITUXAN [Suspect]
     Active Substance: RITUXIMAB
     Dosage: OVER 8 HOURS, FIRST DOSE THROUGH RPAP, RETREATMENTS EVERY 4 - 6 MONTHS AS REQUIRED.
     Dates: start: 20170508, end: 20170901
  3. RITUXAN [Suspect]
     Active Substance: RITUXIMAB
     Dosage: DAY 1, DAY 15
     Dates: start: 20180112, end: 20180606
  4. RITUXAN [Suspect]
     Active Substance: RITUXIMAB
     Dosage: OVER 8 HOURS, SINGLE INFUSION
     Dates: start: 20180104, end: 20180104
  5. RITUXAN [Suspect]
     Active Substance: RITUXIMAB
     Dosage: FOR 4 WEEKS?PREVIOUS RITUXAN INFUSION: 04/OCT/2019
     Dates: start: 20190913, end: 20191004
  6. RITUXAN [Suspect]
     Active Substance: RITUXIMAB
     Dosage: INITIATED OUTSIDE RPAP IN HOSPITAL. DAY 1; 15
     Dates: start: 20150601, end: 20150615
  7. RITUXAN [Suspect]
     Active Substance: RITUXIMAB
     Dosage: PATIENT ADVISED DURING ENROLMENT THAT SHE RECEIVED 4 DOSES
     Dates: start: 2015, end: 2017
  8. RITUXAN [Suspect]
     Active Substance: RITUXIMAB
     Dates: start: 20200116, end: 20200130
  9. RITUXAN [Suspect]
     Active Substance: RITUXIMAB
     Dosage: SINGLE INFUSIONS EVERY 3-4 MONTHS
     Dates: start: 20200416, end: 20220106
  10. DIPHENHYDRAMINE HYDROCHLORIDE [Concomitant]
     Active Substance: DIPHENHYDRAMINE HYDROCHLORIDE
     Dates: start: 20170508
  11. DIPHENHYDRAMINE HYDROCHLORIDE [Concomitant]
     Active Substance: DIPHENHYDRAMINE HYDROCHLORIDE
     Dates: start: 20150608
  12. DIPHENHYDRAMINE HYDROCHLORIDE [Concomitant]
     Active Substance: DIPHENHYDRAMINE HYDROCHLORIDE
     Dates: start: 20190104
  13. ACETAMINOPHEN [Concomitant]
     Active Substance: ACETAMINOPHEN
     Dates: start: 20170508
  14. ACETAMINOPHEN [Concomitant]
     Active Substance: ACETAMINOPHEN
     Dates: start: 20150608
  15. ACETAMINOPHEN [Concomitant]
     Active Substance: ACETAMINOPHEN
     Dates: start: 20190104
  16. METHYLPREDNISOLONE [Concomitant]
     Active Substance: METHYLPREDNISOLONE
     Dates: start: 20170508
  17. METHYLPREDNISOLONE [Concomitant]
     Active Substance: METHYLPREDNISOLONE
     Dates: start: 20150608
  18. METHYLPREDNISOLONE [Concomitant]
     Active Substance: METHYLPREDNISOLONE
     Dates: start: 20190104
  19. METHYLPREDNISOLONE [Concomitant]
     Active Substance: METHYLPREDNISOLONE
     Dosage: ONGOING, UNCONFIRMED PREVIOUS EXPOSURE AS NO PIRS RECEIVED PRIOR TO 04-JAN-2019
     Dates: start: 20180606, end: 20201019
  20. METHYLPREDNISOLONE [Concomitant]
     Active Substance: METHYLPREDNISOLONE
     Dates: start: 20210118, end: 20210118
  21. METHYLPREDNISOLONE [Concomitant]
     Active Substance: METHYLPREDNISOLONE
     Dates: start: 20210519
  22. LABETALOL [Concomitant]
     Active Substance: LABETALOL\LABETALOL HYDROCHLORIDE
  23. LASIX [Concomitant]
     Active Substance: FUROSEMIDE

REACTIONS (29)
  - Vasculitis [None]
  - Cardiac disorder [None]
  - Renal failure [None]
  - Pulmonary oedema [None]
  - Wound infection [None]
  - Hypertension [None]
  - Intentional product misuse [None]
  - Product administration error [None]
  - Cardiac disorder [None]
  - Myocardial infarction [None]
  - Cardiac disorder [None]
  - Limb injury [None]
  - Musculoskeletal stiffness [None]
  - Joint stiffness [None]
  - Wrong technique in product usage process [None]
  - Headache [None]
  - Diarrhoea [None]
  - Off label use [None]
  - Blood pressure increased [None]
  - Oxygen saturation decreased [None]
  - Blood pressure systolic abnormal [None]
  - Blood pressure diastolic abnormal [None]
  - Infusion related reaction [None]
  - Blood pressure fluctuation [None]
  - Arthralgia [None]
  - Infusion related reaction [None]
  - Eczema [None]
  - Heart rate increased [None]
  - Blood pressure systolic increased [None]

NARRATIVE: CASE EVENT DATE: 20170502
